FAERS Safety Report 6767229-9 (Version None)
Quarter: 2010Q2

REPORT INFORMATION
  Report Type: 
  Country: None (occurrence: None)
  Receive Date: 20100614
  Receipt Date: 20100602
  Transmission Date: 20101027
  Serious: Yes (Other)
  Sender: FDA-Public Use
  Company Number: JP-ASTRAZENECA-2010SE27016

PATIENT
  Age: 79 Year
  Sex: Male

DRUGS (1)
  1. MEROPEN [Suspect]
     Indication: PNEUMONITIS
     Dosage: SINGLE USE
     Route: 042

REACTIONS (1)
  - PNEUMONITIS [None]
